FAERS Safety Report 5931682-0 (Version None)
Quarter: 2008Q4

REPORT INFORMATION
  Report Type: 
  Country: None (occurrence: None)
  Receive Date: 20081009
  Receipt Date: 20080512
  Transmission Date: 20090506
  Serious: Yes (Other)
  Sender: FDA-Public Use
  Company Number: PHEH2008US01375

PATIENT
  Age: 55 Year
  Sex: Male

DRUGS (6)
  1. ZOMETA [Suspect]
     Indication: MULTIPLE MYELOMA
     Dosage: 4 MG
     Dates: start: 20050501, end: 20080101
  2. DECADRON [Concomitant]
  3. THALIDOMIDE [Concomitant]
  4. VELCADE [Concomitant]
  5. REVLIMID [Concomitant]
  6. MELPHALAN (MELPHALAN) [Concomitant]

REACTIONS (5)
  - DEBRIDEMENT [None]
  - OSTEONECROSIS [None]
  - SEQUESTRECTOMY [None]
  - TOOTH ABSCESS [None]
  - TOOTH EXTRACTION [None]
